APPROVED DRUG PRODUCT: THYROSAFE
Active Ingredient: POTASSIUM IODIDE
Strength: 130MG
Dosage Form/Route: TABLET;ORAL
Application: A076350 | Product #002
Applicant: BTG INTERNATIONAL INC
Approved: Apr 2, 2025 | RLD: No | RS: No | Type: OTC